FAERS Safety Report 25447856 (Version 2)
Quarter: 2025Q3

REPORT INFORMATION
  Report Type: Spontaneous
  Country: US (occurrence: US)
  Receive Date: 20250617
  Receipt Date: 20250816
  Transmission Date: 20251020
  Serious: Yes (Hospitalization)
  Sender: ALEXION PHARMACEUTICALS
  Company Number: US-AstraZeneca-CH-00890315A

PATIENT
  Sex: Male

DRUGS (2)
  1. XIGDUO XR [Suspect]
     Active Substance: DAPAGLIFLOZIN PROPANEDIOL\METFORMIN HYDROCHLORIDE
     Route: 065
  2. INSULIN NOS [Suspect]
     Active Substance: INSULIN NOS

REACTIONS (8)
  - Diabetic ketoacidosis [Unknown]
  - Presyncope [Unknown]
  - Glycosylated haemoglobin increased [Unknown]
  - Hypophagia [Unknown]
  - Feeling abnormal [Unknown]
  - Asthenia [Unknown]
  - Condition aggravated [Unknown]
  - Somnolence [Unknown]
